FAERS Safety Report 26201089 (Version 1)
Quarter: 2025Q4

REPORT INFORMATION
  Report Type: Spontaneous
  Country: US (occurrence: US)
  Receive Date: 20251226
  Receipt Date: 20251226
  Transmission Date: 20260117
  Serious: Yes (Hospitalization)
  Sender: CELLTRION
  Company Number: US-CELLTRION INC.-2025US034828

PATIENT

DRUGS (7)
  1. RITUXIMAB [Suspect]
     Active Substance: RITUXIMAB
     Indication: Nephritis
     Dosage: 750 MG/M2 (WITH A MAXIMUM OF 1G PER DOSE) WITH TWO DOSES ADMINISTERED TWO WEEKS APART EVERY SIX MONT
     Route: 042
  2. CYCLOPHOSPHAMIDE [Suspect]
     Active Substance: CYCLOPHOSPHAMIDE
     Indication: Nephritis
     Dosage: 500 TO 750 MG/M2 INTRAVENOUSLY ONCE A MONTH FOR SIX MONTHS
     Route: 042
  3. PREDNISONE [Concomitant]
     Active Substance: PREDNISONE
     Dosage: 20 MG
     Route: 048
  4. MESNA [Concomitant]
     Active Substance: MESNA
     Indication: Premedication
  5. DIPHENHYDRAMINE [Concomitant]
     Active Substance: DIPHENHYDRAMINE
     Indication: Premedication
     Dosage: STANDARD DOSES
  6. ACETAMINOPHEN [Concomitant]
     Active Substance: ACETAMINOPHEN
     Indication: Premedication
     Dosage: STANDARD DOSES
  7. METHYLPREDNISOLONE [Concomitant]
     Active Substance: METHYLPREDNISOLONE
     Indication: Premedication
     Dosage: VARYING DOSES; MAXIMUM OF 1G PER DOSE

REACTIONS (2)
  - Gastroenteritis [Unknown]
  - Intentional product use issue [Unknown]
